FAERS Safety Report 10450455 (Version 1)
Quarter: 2014Q3

REPORT INFORMATION
  Report Type: Spontaneous
  Country: US (occurrence: None)
  Receive Date: 20140910
  Receipt Date: 20140910
  Transmission Date: 20150326
  Serious: Yes (Hospitalization)
  Sender: FDA-Public Use
  Company Number: UCM201408-000162

PATIENT
  Age: 54 Year
  Sex: Male

DRUGS (4)
  1. VALSARTAN (VALSARTAN) (VALSARTAN) [Suspect]
     Active Substance: VALSARTAN
  2. AMLODIPINE [Suspect]
     Active Substance: AMLODIPINE BESYLATE
  3. CARBON MONOXIDE [Suspect]
     Active Substance: CARBON MONOXIDE
  4. ATENOLOL (ATENOLOL) (ATENOLOL) [Suspect]
     Active Substance: ATENOLOL

REACTIONS (6)
  - Pulmonary oedema [None]
  - Hypotension [None]
  - Renal failure [None]
  - Supraventricular extrasystoles [None]
  - Intentional overdose [None]
  - Lactic acidosis [None]
